FAERS Safety Report 25361863 (Version 4)
Quarter: 2025Q3

REPORT INFORMATION
  Report Type: Spontaneous
  Country: US (occurrence: US)
  Receive Date: 20250527
  Receipt Date: 20250704
  Transmission Date: 20251020
  Serious: No
  Sender: JOHNSON AND JOHNSON
  Company Number: US-JNJFOC-20250528627

PATIENT
  Age: 73 Year
  Sex: Female
  Weight: 31.8 kg

DRUGS (2)
  1. TREMFYA [Suspect]
     Active Substance: GUSELKUMAB
     Indication: Crohn^s disease
     Route: 065
  2. TREMFYA [Suspect]
     Active Substance: GUSELKUMAB
     Dosage: THERAPY START DATE- 22-MAY-2025
     Route: 058

REACTIONS (2)
  - Product dose omission issue [Unknown]
  - Device deployment issue [Unknown]

NARRATIVE: CASE EVENT DATE: 20250521
